FAERS Safety Report 25323674 (Version 1)
Quarter: 2025Q2

REPORT INFORMATION
  Report Type: Spontaneous
  Country: US (occurrence: None)
  Receive Date: 20250516
  Receipt Date: 20250516
  Transmission Date: 20250717
  Serious: Yes (Hospitalization)
  Sender: FDA-CTU
  Company Number: None

PATIENT
  Age: 32 Year
  Sex: Female

DRUGS (2)
  1. TADALAFIL [Suspect]
     Active Substance: TADALAFIL
     Indication: Pulmonary arterial hypertension
     Dosage: 40 MG DAILY ORAL ?
     Route: 048
     Dates: start: 20240529
  2. REMODULIN [Suspect]
     Active Substance: TREPROSTINIL

REACTIONS (9)
  - Gastric ulcer [None]
  - Abdominal pain upper [None]
  - Headache [None]
  - Nausea [None]
  - Vomiting [None]
  - Dyspnoea [None]
  - Oedema [None]
  - Swelling [None]
  - Extra dose administered [None]

NARRATIVE: CASE EVENT DATE: 20250515
